FAERS Safety Report 7595887-8 (Version None)
Quarter: 2011Q3

REPORT INFORMATION
  Report Type: 
  Country: None (occurrence: None)
  Receive Date: 20110707
  Receipt Date: 20110630
  Transmission Date: 20111222
  Serious: Yes (Other)
  Sender: FDA-Public Use
  Company Number: PHHY2011DK58961

PATIENT
  Sex: Female

DRUGS (2)
  1. OXAZEPAM [Suspect]
     Dosage: 1 DF, BID
     Route: 048
  2. OXAZEPAM [Suspect]
     Dosage: HALF A TABLET IN THE EVENING AND A QUARTER OF A TABLET IN THE MORNING.
     Dates: start: 20110109

REACTIONS (9)
  - FATIGUE [None]
  - INCREASED BRONCHIAL SECRETION [None]
  - MUSCULAR WEAKNESS [None]
  - BALANCE DISORDER [None]
  - SALIVARY HYPERSECRETION [None]
  - CONFUSIONAL STATE [None]
  - DEPENDENCE [None]
  - WITHDRAWAL SYNDROME [None]
  - AGGRESSION [None]
